FAERS Safety Report 8732438 (Version 2)
Quarter: 2012Q4

REPORT INFORMATION
  Report Type: 
  Country: None (occurrence: US)
  Receive Date: 20120820
  Receipt Date: 20121113
  Transmission Date: 20130627
  Serious: Yes (Other)
  Sender: FDA-Public Use
  Company Number: US-TEVA-353575USA

PATIENT
  Age: 53 Year
  Sex: Male

DRUGS (2)
  1. FENTORA [Suspect]
     Indication: BRAIN NEOPLASM MALIGNANT
     Route: 002
  2. OXYCODONE [Concomitant]

REACTIONS (5)
  - Convulsion [Recovered/Resolved]
  - Road traffic accident [Recovered/Resolved]
  - Gait disturbance [Unknown]
  - Bradyphrenia [Unknown]
  - Muscular weakness [Unknown]
